FAERS Safety Report 17305622 (Version 2)
Quarter: 2021Q1

REPORT INFORMATION
  Report Type: Spontaneous
  Country: CA (occurrence: CA)
  Receive Date: 20200123
  Receipt Date: 20210113
  Transmission Date: 20210419
  Serious: Yes (Hospitalization)
  Sender: FDA-Public Use
  Company Number: CA-MYLANLABS-2020M1007363

PATIENT
  Age: 61 Year
  Sex: Male

DRUGS (4)
  1. METHOTREXATE. [Suspect]
     Active Substance: METHOTREXATE
     Indication: DIFFUSE LARGE B-CELL LYMPHOMA
     Dosage: 6500 MILLIGRAM, HIGH?DOSE...
     Route: 042
  2. GLUCARPIDASE [Concomitant]
     Active Substance: GLUCARPIDASE
     Indication: ACUTE KIDNEY INJURY
     Dosage: VIAL STRENGTH: 1000 UNITS/VIAL....
     Route: 040
  3. GLUCARPIDASE [Concomitant]
     Active Substance: GLUCARPIDASE
     Indication: TOXICITY TO VARIOUS AGENTS
  4. LEUCOVORIN                         /00566701/ [Concomitant]
     Active Substance: LEUCOVORIN
     Indication: TOXICITY TO VARIOUS AGENTS
     Dosage: 1860 MILLIGRAM, Q3H,HIGH?DOSE ...
     Route: 042

REACTIONS (5)
  - Acute kidney injury [Recovered/Resolved]
  - False positive investigation result [Recovered/Resolved]
  - Status epilepticus [Recovered/Resolved]
  - Transaminases increased [Recovered/Resolved]
  - Toxicity to various agents [Recovered/Resolved]
